FAERS Safety Report 8270598-4 (Version None)
Quarter: 2012Q2

REPORT INFORMATION
  Report Type: 
  Country: None (occurrence: None)
  Receive Date: 20120410
  Receipt Date: 20120328
  Transmission Date: 20120825
  Serious: Yes (Life-Threatening, Hospitalization, Disabling)
  Sender: FDA-Public Use
  Company Number: GB-MPIJNJ-2012-02045

PATIENT

DRUGS (9)
  1. DIAZEPAM [Concomitant]
     Indication: ANXIETY
     Dosage: 10 MG, UNK
  2. ACYCLOVIR [Concomitant]
     Indication: HERPES ZOSTER
     Dosage: 200 MG, UNK
     Dates: start: 20111130, end: 20120109
  3. ORAMORPH SR [Concomitant]
     Indication: PAIN
     Dosage: 10 MG, UNK
     Dates: start: 20090101
  4. HYDROXYZINE [Concomitant]
     Indication: PRURITUS
     Dosage: UNK
     Dates: start: 20111130, end: 20120113
  5. VELCADE [Suspect]
     Indication: MULTIPLE MYELOMA
     Dosage: 1.3 MG/M2, UNK
     Route: 042
     Dates: start: 20111031, end: 20120103
  6. PAMIDRONATE DISODIUM [Concomitant]
     Indication: MULTIPLE MYELOMA
     Dosage: 90 MG, UNK
     Dates: start: 20090101
  7. OMEPRAZOLE [Concomitant]
     Indication: DYSPEPSIA
     Dosage: 20 MG, UNK
  8. ACETAMINOPHEN [Concomitant]
     Indication: PAIN
  9. ZIMOVANE [Concomitant]
     Indication: INSOMNIA
     Dosage: 7.5 MG, UNK

REACTIONS (3)
  - CARDIAC FAILURE CONGESTIVE [None]
  - MYOCARDIAL INFARCTION [None]
  - DYSPNOEA [None]
